FAERS Safety Report 10173200 (Version 1)
Quarter: 2014Q2

REPORT INFORMATION
  Report Type: Spontaneous
  Country: US (occurrence: None)
  Receive Date: 20140514
  Receipt Date: 20140514
  Transmission Date: 20141212
  Serious: Yes (Life-Threatening)
  Sender: FDA-Public Use
  Company Number: None

PATIENT
  Age: 93 Year
  Sex: Female
  Weight: 52 kg

DRUGS (2)
  1. ALTEPLASE [Suspect]
     Indication: ISCHAEMIC STROKE
     Dosage: 45MG ONE TIME INFUSION INTRAVENOUS
     Route: 042
     Dates: start: 20140510
  2. VASOTEC [Concomitant]

REACTIONS (1)
  - Angioedema [None]
